FAERS Safety Report 8017424-6 (Version None)
Quarter: 2012Q1

REPORT INFORMATION
  Report Type: 
  Country: None (occurrence: None)
  Receive Date: 20120102
  Receipt Date: 20111216
  Transmission Date: 20120608
  Serious: Yes (Hospitalization)
  Sender: FDA-Public Use
  Company Number: PHHY2011FR099221

PATIENT
  Sex: Female
  Weight: 63 kg

DRUGS (6)
  1. IMATINIB MESYLATE [Suspect]
     Indication: CHRONIC MYELOID LEUKAEMIA
     Dosage: 400 MG,DAILY
     Route: 065
     Dates: start: 20110630
  2. PLAVIX [Concomitant]
  3. ATACAND [Concomitant]
  4. ASPIRIN [Concomitant]
  5. RABEPRAZOLE SODIUM [Concomitant]
  6. SIMVASTATIN [Concomitant]

REACTIONS (2)
  - THROMBOSIS [None]
  - ARTERIAL THROMBOSIS LIMB [None]
